FAERS Safety Report 6233311-8 (Version None)
Quarter: 2009Q2

REPORT INFORMATION
  Report Type: 
  Country: None (occurrence: None)
  Receive Date: 20090617
  Receipt Date: 20090615
  Transmission Date: 20091009
  Serious: Yes (Life-Threatening, Hospitalization)
  Sender: FDA-Public Use
  Company Number: US-GENENTECH-282781

PATIENT
  Sex: Female
  Weight: 85.714 kg

DRUGS (5)
  1. AVASTIN [Suspect]
     Indication: BREAST CANCER METASTATIC
     Dosage: 1000 MG, SINGLE
     Route: 042
     Dates: start: 20090325, end: 20090325
  2. AVASTIN [Suspect]
     Dosage: 1000 MG, SINGLE
     Route: 042
     Dates: start: 20090415, end: 20090415
  3. ZOMETA [Concomitant]
     Indication: DRUG USE FOR UNKNOWN INDICATION
     Dosage: 4 MG, UNK
     Dates: start: 20090415, end: 20090415
  4. GEMZAR [Concomitant]
     Indication: DRUG USE FOR UNKNOWN INDICATION
     Dosage: 1500 MG, UNK
     Dates: start: 20090415
  5. GEMZAR [Concomitant]
     Dosage: 4000 MG, UNK
     Dates: start: 20090325

REACTIONS (5)
  - ABDOMINAL PAIN [None]
  - BACK PAIN [None]
  - CONSTIPATION [None]
  - INTESTINAL PERFORATION [None]
  - NAUSEA [None]
